FAERS Safety Report 18158880 (Version 1)
Quarter: 2020Q3

REPORT INFORMATION
  Report Type: Other
  Country: IT (occurrence: IT)
  Receive Date: 20200818
  Receipt Date: 20200818
  Transmission Date: 20201103
  Serious: Yes (Other)
  Sender: FDA-Public Use
  Company Number: IT-CELLTRION INC.-2020IT025034

PATIENT

DRUGS (1)
  1. RITUXIMAB (UNKNOWN) [Suspect]
     Active Substance: RITUXIMAB
     Indication: AUTOIMMUNE PANCREATITIS
     Dosage: 200 MG 1 CYCLE
     Route: 041
     Dates: start: 20200715, end: 20200715

REACTIONS (4)
  - Urticaria [Recovered/Resolved]
  - Off label use [Recovered/Resolved]
  - Sensation of foreign body [Recovered/Resolved]
  - Laryngeal oedema [Recovered/Resolved]

NARRATIVE: CASE EVENT DATE: 20200715
